FAERS Safety Report 9310813 (Version 1)
Quarter: 2013Q2

REPORT INFORMATION
  Report Type: Spontaneous
  Country: US (occurrence: None)
  Receive Date: 20130523
  Receipt Date: 20130523
  Transmission Date: 20140414
  Serious: Yes (Hospitalization)
  Sender: FDA-Public Use
  Company Number: None

PATIENT
  Age: 41 Year
  Sex: Male
  Weight: 70.31 kg

DRUGS (2)
  1. GAMMAGARD [Suspect]
     Indication: IMMUNODEFICIENCY
     Route: 042
     Dates: start: 20130419, end: 20130419
  2. GAMMAGARD [Suspect]
     Route: 042
     Dates: start: 20130419, end: 20130419

REACTIONS (1)
  - Meningitis aseptic [None]
